FAERS Safety Report 9529800 (Version 1)
Quarter: 2013Q2

REPORT INFORMATION
  Report Type: Spontaneous
  Country: US (occurrence: None)
  Receive Date: 20130402
  Receipt Date: 20130402
  Transmission Date: 20140414
  Serious: Yes (Other)
  Sender: FDA-Public Use
  Company Number: RB-48660-2013

PATIENT
  Age: 51 Year
  Sex: Male

DRUGS (1)
  1. SUBOXONE [Suspect]
     Indication: PRODUCT USED FOR UNKNOWN INDICATION
     Dosage: (SUBOXONE FILM; DOSING DETAILS UNKNOWN UNKNOWN)?

REACTIONS (5)
  - Migraine [None]
  - Anxiety [None]
  - Hyperhidrosis [None]
  - Insomnia [None]
  - Oedema peripheral [None]
